FAERS Safety Report 25734961 (Version 2)
Quarter: 2025Q3

REPORT INFORMATION
  Report Type: Report from Study
  Country: EU (occurrence: EU)
  Receive Date: 20250828
  Receipt Date: 20250904
  Transmission Date: 20251021
  Serious: Yes (Other)
  Sender: ALEXION PHARMACEUTICALS
  Company Number: EU-ASTRAZENECA-202508GLO016322DE

PATIENT
  Sex: Female
  Weight: 89 kg

DRUGS (7)
  1. DAPAGLIFLOZIN [Suspect]
     Active Substance: DAPAGLIFLOZIN
     Indication: Cardiac failure chronic
     Dosage: 10 MILLIGRAM, QD
     Dates: start: 20250508
  2. NEBIVOLOL [Concomitant]
     Active Substance: NEBIVOLOL
     Dosage: 5 MILLIGRAM, QD
     Dates: start: 2020
  3. TORSEMIDE [Concomitant]
     Active Substance: TORSEMIDE
     Dosage: 10 MILLIGRAM, QD
     Dates: start: 2020
  4. DIGOXIN [Concomitant]
     Active Substance: DIGOXIN
  5. SACUBITRIL [Concomitant]
     Active Substance: SACUBITRIL
     Dosage: 97 MILLIGRAM, QD
     Dates: start: 2017
  6. VALSARTAN [Concomitant]
     Active Substance: VALSARTAN
     Dosage: 103 MILLIGRAM, QD
     Dates: start: 2017
  7. LEVOTHYROXINE SODIUM [Concomitant]
     Active Substance: LEVOTHYROXINE SODIUM
     Dosage: 75 MICROGRAM, QD
     Dates: start: 2000

REACTIONS (5)
  - Cholecystitis [Recovered/Resolved]
  - Cystitis [Unknown]
  - Headache [Unknown]
  - Dizziness [Unknown]
  - Cystitis noninfective [Recovered/Resolved]

NARRATIVE: CASE EVENT DATE: 20250520
